FAERS Safety Report 11912380 (Version 1)
Quarter: 2016Q1

REPORT INFORMATION
  Report Type: Spontaneous
  Country: FI (occurrence: FI)
  Receive Date: 20160113
  Receipt Date: 20160113
  Transmission Date: 20160526
  Serious: Yes (Hospitalization, Other)
  Sender: FDA-Public Use
  Company Number: FI-ABBVIE-16K-055-1534325-00

PATIENT
  Age: 57 Year
  Sex: Male
  Weight: 88 kg

DRUGS (13)
  1. HUMIRA [Suspect]
     Active Substance: ADALIMUMAB
     Indication: TENDONITIS
     Route: 058
     Dates: start: 201401, end: 201404
  2. MERCAPTOPURINE. [Concomitant]
     Active Substance: MERCAPTOPURINE
     Dates: start: 201402
  3. NORSPAN [Concomitant]
     Active Substance: BUPRENORPHINE
     Indication: VISCERAL PAIN
     Dosage: 10 MICROGRAM/H / 3-4 DAYS
     Route: 062
  4. SALAZOSULFAPYRIDINE [Concomitant]
     Active Substance: SULFASALAZINE
     Indication: PRODUCT USED FOR UNKNOWN INDICATION
     Dosage: TWO TABLETS TWICE A DAY
  5. OXYNORM [Concomitant]
     Active Substance: OXYCODONE HYDROCHLORIDE
     Indication: PRODUCT USED FOR UNKNOWN INDICATION
     Dosage: 1 TO 4 TIMES PER DAY AS NEEDED
     Dates: start: 201403
  6. MERCAPTOPURINE. [Concomitant]
     Active Substance: MERCAPTOPURINE
     Indication: PRODUCT USED FOR UNKNOWN INDICATION
     Dates: start: 200504
  7. MERCAPTOPURINE. [Concomitant]
     Active Substance: MERCAPTOPURINE
     Dates: end: 201404
  8. NORSPAN [Concomitant]
     Active Substance: BUPRENORPHINE
     Dosage: 1 TO 2 TIMES A DAY
     Dates: start: 201403
  9. SALAZOSULFAPYRIDINE [Concomitant]
     Active Substance: SULFASALAZINE
     Dates: start: 201403
  10. PREDNISOLON [Concomitant]
     Active Substance: PREDNISOLONE
     Indication: PRODUCT USED FOR UNKNOWN INDICATION
     Dates: start: 201402, end: 201403
  11. MIRTAZAPIN [Concomitant]
     Active Substance: MIRTAZAPINE
     Indication: PRODUCT USED FOR UNKNOWN INDICATION
     Dates: start: 201403
  12. PREDNISOLON [Concomitant]
     Active Substance: PREDNISOLONE
     Dates: start: 201403
  13. VENLAFAXIN [Concomitant]
     Active Substance: VENLAFAXINE HYDROCHLORIDE
     Indication: VISCERAL PAIN

REACTIONS (11)
  - Colitis [Recovered/Resolved]
  - Haematochezia [Unknown]
  - Arthralgia [Unknown]
  - Gastrointestinal tract adenoma [Unknown]
  - Proctitis [Unknown]
  - Large intestine polyp [Unknown]
  - Drug ineffective [Unknown]
  - Muscle rupture [Unknown]
  - Gastrointestinal oedema [Unknown]
  - Diarrhoea [Unknown]
  - Joint range of motion decreased [Unknown]

NARRATIVE: CASE EVENT DATE: 2014
